FAERS Safety Report 7190046-5 (Version None)
Quarter: 2010Q4

REPORT INFORMATION
  Report Type: 
  Country: None (occurrence: None)
  Receive Date: 20101210
  Receipt Date: 20101201
  Transmission Date: 20110411
  Serious: Yes (Other)
  Sender: FDA-Public Use
  Company Number: 2010US004931

PATIENT
  Age: 18 Year
  Sex: Female

DRUGS (1)
  1. PROTOPIC [Suspect]
     Dosage: TOPICAL; 0.03%, /D TOPICAL
     Route: 061

REACTIONS (1)
  - LENTIGO [None]
